FAERS Safety Report 8400813 (Version 2)
Quarter: 2013Q1

REPORT INFORMATION
  Report Type: Spontaneous
  Country: US (occurrence: US)
  Receive Date: 20120210
  Receipt Date: 20130219
  Transmission Date: 20140127
  Serious: No
  Sender: FDA-Public Use
  Company Number: US-BRISTOL-MYERS SQUIBB COMPANY-16229619

PATIENT
  Age: 78 Year
  Sex: Female
  Weight: 59 kg

DRUGS (5)
  1. ORENCIA FOR INJ [Suspect]
     Indication: RHEUMATOID ARTHRITIS
     Dosage: 28SEP2011,RECENT INF 20OCT11?LAST INF:8FEB12, NEXT INF:7MAR12?INF:3
     Route: 042
     Dates: start: 20110914
  2. MACROBID [Concomitant]
  3. METHOTREXATE [Concomitant]
  4. PLAQUENIL [Concomitant]
  5. PREDNISONE [Concomitant]

REACTIONS (1)
  - Pruritus [Not Recovered/Not Resolved]
